FAERS Safety Report 6929939-X (Version None)
Quarter: 2010Q3

REPORT INFORMATION
  Report Type: 
  Country: None (occurrence: None)
  Receive Date: 20100817
  Receipt Date: 20100817
  Transmission Date: 20110219
  Serious: Yes (Other)
  Sender: FDA-Public Use
  Company Number: None

PATIENT
  Age: 71 Year
  Sex: Female
  Weight: 52.6173 kg

DRUGS (1)
  1. CIPROFLOXACIN [Suspect]
     Indication: EAR INFECTION
     Dosage: 500 MG. BID ORAL
     Route: 048
     Dates: start: 20100715, end: 20100726

REACTIONS (3)
  - CHILLS [None]
  - HEADACHE [None]
  - PYREXIA [None]
